FAERS Safety Report 21340291 (Version 3)
Quarter: 2022Q4

REPORT INFORMATION
  Report Type: Report from Study
  Country: AR (occurrence: None)
  Receive Date: 20220916
  Receipt Date: 20221024
  Transmission Date: 20230113
  Serious: Yes (Hospitalization)
  Sender: FDA-Public Use
  Company Number: AR-ROCHE-3180387

PATIENT
  Age: 71 Year
  Sex: Male
  Weight: 74 kg

DRUGS (20)
  1. ATEZOLIZUMAB [Suspect]
     Active Substance: ATEZOLIZUMAB
     Indication: Hormone-refractory prostate cancer
     Route: 041
     Dates: start: 20220602
  2. ATEZOLIZUMAB [Suspect]
     Active Substance: ATEZOLIZUMAB
     Route: 041
     Dates: start: 20220622
  3. ATEZOLIZUMAB [Suspect]
     Active Substance: ATEZOLIZUMAB
     Route: 041
     Dates: start: 20220713
  4. ATEZOLIZUMAB [Suspect]
     Active Substance: ATEZOLIZUMAB
     Route: 041
     Dates: start: 20220804
  5. ATEZOLIZUMAB [Suspect]
     Active Substance: ATEZOLIZUMAB
     Route: 041
     Dates: start: 20220824
  6. CABOZANTINIB [Suspect]
     Active Substance: CABOZANTINIB
     Indication: Hormone-refractory prostate cancer
     Route: 048
     Dates: start: 20220602, end: 20220621
  7. CABOZANTINIB [Suspect]
     Active Substance: CABOZANTINIB
     Route: 048
     Dates: start: 20220622, end: 20220827
  8. CABOZANTINIB [Suspect]
     Active Substance: CABOZANTINIB
     Dosage: ON 04/SEP/2022, THE PATIENT RECEIVED THE MOST RECENT DOSE OF CABOZANTINIB PRIOR TO THE EVENT ONSET
     Route: 048
     Dates: start: 20220903, end: 20220904
  9. ASPIRIN [Concomitant]
     Active Substance: ASPIRIN
     Dates: start: 20200801
  10. BISOPROLOL [Concomitant]
     Active Substance: BISOPROLOL
     Dates: start: 20200801
  11. ENALAPRIL [Concomitant]
     Active Substance: ENALAPRIL
     Dates: start: 20220617, end: 20220827
  12. FAMOTIDINE [Concomitant]
     Active Substance: FAMOTIDINE
     Dates: start: 20220829
  13. LEUPROLIDE [Concomitant]
     Active Substance: LEUPROLIDE
     Dates: start: 20180406
  14. LOSARTAN [Concomitant]
     Active Substance: LOSARTAN
     Dates: start: 20220828
  15. METOCLOPRAMIDE [Concomitant]
     Active Substance: METOCLOPRAMIDE
     Dates: start: 20220828, end: 20220829
  16. RANITIDINE [Concomitant]
     Active Substance: RANITIDINE
     Dates: start: 20220828, end: 20220829
  17. SALINE NASAL MIST [Concomitant]
     Dates: start: 20220828, end: 20220829
  18. TAMSULOSIN HYDROCHLORIDE [Concomitant]
     Active Substance: TAMSULOSIN HYDROCHLORIDE
     Dates: start: 20220818
  19. IBUPROFEN [Concomitant]
     Active Substance: IBUPROFEN
     Dates: start: 20220830, end: 20220901
  20. OMEPRAZOLE [Concomitant]
     Active Substance: OMEPRAZOLE
     Dates: start: 20220911

REACTIONS (1)
  - Pneumonitis [Recovered/Resolved]

NARRATIVE: CASE EVENT DATE: 20220906
